FAERS Safety Report 11686669 (Version 2)
Quarter: 2015Q4

REPORT INFORMATION
  Report Type: Spontaneous
  Country: ES (occurrence: ES)
  Receive Date: 20151030
  Receipt Date: 20151214
  Transmission Date: 20160304
  Serious: Yes (Other)
  Sender: FDA-Public Use
  Company Number: ES-ASTRAZENECA-2015SE96657

PATIENT
  Sex: Female
  Weight: 65 kg

DRUGS (2)
  1. SYMBICORT [Suspect]
     Active Substance: BUDESONIDE\FORMOTEROL FUMARATE DIHYDRATE
     Dosage: 320 /9?G ,1 DF, EVERY 12 HOURS (1PUFF/12H)
     Route: 055
     Dates: start: 20131001
  2. VENTOLIN [Concomitant]
     Active Substance: ALBUTEROL SULFATE

REACTIONS (5)
  - Respiratory failure [Unknown]
  - Suffocation feeling [Unknown]
  - Device malfunction [Unknown]
  - Drug ineffective [Unknown]
  - Product quality issue [Unknown]
